FAERS Safety Report 8462028-4 (Version None)
Quarter: 2012Q2

REPORT INFORMATION
  Report Type: 
  Country: None (occurrence: None)
  Receive Date: 20120625
  Receipt Date: 20120615
  Transmission Date: 20120825
  Serious: Yes (Hospitalization)
  Sender: FDA-Public Use
  Company Number: CA-JNJFOC-20120607952

PATIENT
  Sex: Female
  Weight: 64.4 kg

DRUGS (2)
  1. DEXILANT [Concomitant]
     Route: 048
  2. REMICADE [Suspect]
     Indication: CROHN'S DISEASE
     Route: 042
     Dates: start: 20111021

REACTIONS (2)
  - APPENDICECTOMY [None]
  - INTESTINAL RESECTION [None]
